FAERS Safety Report 22317289 (Version 7)
Quarter: 2024Q3

REPORT INFORMATION
  Report Type: Spontaneous
  Country: GB (occurrence: GB)
  Receive Date: 20230515
  Receipt Date: 20240923
  Transmission Date: 20241017
  Serious: Yes (Other)
  Sender: CELLTRION
  Company Number: GB-CELLTRION INC.-2023GB009867

PATIENT

DRUGS (18)
  1. ADALIMUMAB [Suspect]
     Active Substance: ADALIMUMAB
     Indication: Crohn^s disease
     Dosage: ADDITIONAL INFO: ROUTE:UNKNOWN
     Route: 050
  2. ADALIMUMAB [Suspect]
     Active Substance: ADALIMUMAB
     Dosage: UNK
     Route: 065
  3. ADALIMUMAB [Suspect]
     Active Substance: ADALIMUMAB
     Dosage: UNK (FORMULATION: OROMUCOSAL SUSPENSION)
     Route: 050
  4. ADALIMUMAB [Suspect]
     Active Substance: ADALIMUMAB
     Dosage: UNK; ;ADDITIONAL INFO: ROUTE:UNKNOWN
     Route: 050
  5. INFLIXIMAB [Suspect]
     Active Substance: INFLIXIMAB
     Indication: Crohn^s disease
     Dosage: ADDITIONAL INFO: ROUTE:UNKNOWNADDITIONAL INFO: ROUTE:UNKNOWN
     Route: 050
  6. INFLIXIMAB [Suspect]
     Active Substance: INFLIXIMAB
     Dosage: ADDITIONAL INFORMATION ON DRUG: ADDITIONAL INFO: ROUTE:UNKNOWN
     Route: 065
  7. INFLIXIMAB [Suspect]
     Active Substance: INFLIXIMAB
     Dosage: UNK; ;ADDITIONAL INFO: ROUTE:UNKNOWNADDITIONAL INFO: ROUTE:UNKNOWN
     Route: 050
  8. ENTYVIO [Suspect]
     Active Substance: VEDOLIZUMAB
     Indication: Crohn^s disease
     Dosage: ADDITIONAL INFO: ROUTE:UNKNOWNADDITIONAL INFO: ROUTE:UNKNOWN
     Route: 050
  9. ENTYVIO [Suspect]
     Active Substance: VEDOLIZUMAB
     Dosage: UNK
     Route: 065
  10. ENTYVIO [Suspect]
     Active Substance: VEDOLIZUMAB
     Dosage: UNK; ;ADDITIONAL INFO: ROUTE:UNKNOW
     Route: 050
  11. METHOTREXATE [Suspect]
     Active Substance: METHOTREXATE
     Indication: Crohn^s disease
     Dosage: ADDITIONAL INFO: ROUTE:UNKNOWNADDITIONAL INFO: ROUTE:UNKNOWN
     Route: 065
  12. METHOTREXATE [Suspect]
     Active Substance: METHOTREXATE
     Dosage: UNK; ;ADDITIONAL INFO: ROUTE:UNKNOWNADDITIONAL INFO: ROUTE:UNKNOWN
     Route: 050
  13. USTEKINUMAB [Suspect]
     Active Substance: USTEKINUMAB
     Indication: Crohn^s disease
     Dosage: ADDITIONAL INFO: ROUTE:UNKNOWNADDITIONAL INFO: ROUTE:UNKNOWN
     Route: 065
  14. USTEKINUMAB [Suspect]
     Active Substance: USTEKINUMAB
     Dosage: UNK; ;ADDITIONAL INFO: ROUTE:UNKNOWNADDITIONAL INFO: ROUTE:UNKNOWN
     Route: 050
  15. METHOTREXATE SODIUM [Suspect]
     Active Substance: METHOTREXATE SODIUM
     Indication: Crohn^s disease
     Dosage: (ADDITIONAL INFORMATION ON DRUG: ADDITIONAL INFO: ROUTE:UNKNOWN)
     Route: 065
  16. REMICADE [Suspect]
     Active Substance: INFLIXIMAB
     Indication: Crohn^s disease
     Route: 042
  17. STELARA [Suspect]
     Active Substance: USTEKINUMAB
     Indication: Crohn^s disease
     Route: 065
  18. VEDOLIZUMAB [Suspect]
     Active Substance: VEDOLIZUMAB
     Indication: Crohn^s disease
     Dosage: ADDITIONAL INFO: ROUTE:UNKNOWN
     Route: 065

REACTIONS (3)
  - Crohn^s disease [Unknown]
  - Drug ineffective [Unknown]
  - Product use in unapproved indication [Unknown]
